FAERS Safety Report 7907086 (Version 3)
Quarter: 2013Q3

REPORT INFORMATION
  Report Type: Spontaneous
  Country: FR (occurrence: FR)
  Receive Date: 20110420
  Receipt Date: 20130708
  Transmission Date: 20140515
  Serious: Yes (Hospitalization, Disabling)
  Sender: FDA-Public Use
  Company Number: PHHY2011FR32628

PATIENT
  Age: 41 Year
  Sex: Female

DRUGS (17)
  1. NEORAL [Suspect]
     Indication: PROPHYLAXIS AGAINST TRANSPLANT REJECTION
     Dosage: 45 MG, BID
     Route: 048
  2. CORTANCYL [Concomitant]
     Dosage: 3 MG, UNK
     Dates: start: 2010
  3. MEPRONIZINE [Concomitant]
     Dosage: UNK UKN, BID
  4. XANAX [Concomitant]
     Dosage: 0.5 MG, TID
  5. LASILIX [Concomitant]
     Dosage: 40 MG, BID
  6. CELECTOL [Concomitant]
     Dosage: 200 MG, QD
  7. TAHOR [Concomitant]
     Dosage: 10 MG, UNK
  8. PLAVIX [Concomitant]
     Dosage: 75 MG, UNK
  9. ALLOPURINOL [Concomitant]
     Dosage: 200 MG, UNK
  10. ERYTHROPOIETIN [Concomitant]
     Dosage: UNK UKN, UNK
  11. SODIUM BICARBONATE [Concomitant]
     Dosage: UNK UKN, UNK
  12. CALCIUM [Concomitant]
     Dosage: UNK UKN, UNK
  13. RED BLOOD CELLS [Concomitant]
     Dosage: UNK UKN, UNK
  14. PARACETAMOL [Concomitant]
     Dosage: UNK UKN, UNK
  15. UTROGESTAN [Concomitant]
     Dosage: 1 DF, UNK
     Route: 048
  16. FOSRENOL [Concomitant]
     Dosage: 500 MG, UNK
  17. MIRCERA [Concomitant]
     Dosage: 50 MCG MONTHLY

REACTIONS (7)
  - Renal artery stenosis [Unknown]
  - Dyspnoea exertional [Unknown]
  - Renal failure [Not Recovered/Not Resolved]
  - Blood creatinine increased [Unknown]
  - Normochromic normocytic anaemia [Unknown]
  - Thrombocytopenia [Unknown]
  - Asthenia [Unknown]
